FAERS Safety Report 13452152 (Version 1)
Quarter: 2017Q2

REPORT INFORMATION
  Report Type: Spontaneous
  Country: CH (occurrence: CH)
  Receive Date: 20170418
  Receipt Date: 20170418
  Transmission Date: 20170830
  Serious: Yes (Hospitalization, Other)
  Sender: FDA-Public Use
  Company Number: CH-AMGEN-CHESP2017056907

PATIENT
  Age: 0 Day
  Sex: Male
  Weight: 2.16 kg

DRUGS (25)
  1. BLEOMYCIN [Suspect]
     Active Substance: BLEOMYCIN SULFATE
     Indication: EXPOSURE DURING PREGNANCY
     Dosage: 10,000 UNITS/M2 I.E. 18,000 UNITS CYCLE 1
     Route: 064
     Dates: start: 20160729, end: 20160812
  2. BLEOMYCIN [Suspect]
     Active Substance: BLEOMYCIN SULFATE
     Dosage: 10,000 UNITS/M2 I.E. 18,000 UNITS CYCLE 2
     Route: 064
     Dates: start: 20160826, end: 20160909
  3. VELBE [Suspect]
     Active Substance: VINBLASTINE SULFATE
     Dosage: 6 MG/M2, CYCLE 3
     Route: 064
     Dates: start: 20160923, end: 20161017
  4. VELBE [Suspect]
     Active Substance: VINBLASTINE SULFATE
     Dosage: 6 MG/M2, CYCLE 2
     Route: 064
     Dates: start: 20160826, end: 20160909
  5. SOLU-MEDROL [Suspect]
     Active Substance: METHYLPREDNISOLONE SODIUM SUCCINATE
     Dosage: 125 MG, CYCLE 3
     Route: 064
     Dates: start: 20160923, end: 20161017
  6. EUTHYROX [Concomitant]
     Active Substance: LEVOTHYROXINE SODIUM
     Indication: EXPOSURE DURING PREGNANCY
     Dosage: UNK
     Route: 064
     Dates: start: 20160624
  7. VELBE [Suspect]
     Active Substance: VINBLASTINE SULFATE
     Indication: EXPOSURE DURING PREGNANCY
     Dosage: 6 MG/M2, CYCLE 1
     Route: 064
     Dates: start: 20160729, end: 20160812
  8. SOLU-MEDROL [Suspect]
     Active Substance: METHYLPREDNISOLONE SODIUM SUCCINATE
     Indication: EXPOSURE DURING PREGNANCY
     Dosage: 125 MG, CYCLE 1
     Route: 064
     Dates: start: 20160729, end: 20160812
  9. GYNEFAM XL [Concomitant]
     Indication: EXPOSURE DURING PREGNANCY
     Dosage: UNK
     Route: 064
     Dates: start: 2016, end: 2016
  10. VITAMIN B12 [Concomitant]
     Active Substance: CYANOCOBALAMIN
     Indication: EXPOSURE DURING PREGNANCY
     Dosage: UNK
     Route: 064
     Dates: start: 201609, end: 201611
  11. DOXORUBICINE [Suspect]
     Active Substance: DOXORUBICIN
     Dosage: 25 MG/M2, (I.E. 45 MG) CYCLE 2
     Route: 064
     Dates: start: 20160826, end: 20160909
  12. DOXORUBICINE [Suspect]
     Active Substance: DOXORUBICIN
     Dosage: 25 MG/M2, (I.E. 45 MG) CYCLE 3
     Route: 064
     Dates: start: 20160923, end: 20161017
  13. BLEOMYCIN [Suspect]
     Active Substance: BLEOMYCIN SULFATE
     Dosage: 10,000 UNITS/M2 I.E. 18,000 UNITS CYCLE 3
     Route: 064
     Dates: start: 20160923
  14. ZOFRAN [Suspect]
     Active Substance: ONDANSETRON HYDROCHLORIDE
     Indication: EXPOSURE DURING PREGNANCY
     Dosage: 8 MG, CYCLE 1 (CONC: 8 MG/4 ML)
     Route: 064
     Dates: start: 20160729, end: 20160812
  15. EMEND [Suspect]
     Active Substance: APREPITANT
     Indication: EXPOSURE DURING PREGNANCY
     Dosage: 125 MG, UNK
     Route: 064
     Dates: start: 20160729
  16. EMEND [Suspect]
     Active Substance: APREPITANT
     Dosage: 80 MG, UNK
     Route: 064
     Dates: start: 20160730
  17. SOLU-MEDROL [Suspect]
     Active Substance: METHYLPREDNISOLONE SODIUM SUCCINATE
     Dosage: 125 MG, CYCLE 2
     Route: 064
     Dates: start: 20160826, end: 20160909
  18. FOLIC ACID. [Concomitant]
     Active Substance: FOLIC ACID
     Indication: EXPOSURE DURING PREGNANCY
     Dosage: UNK
     Route: 064
     Dates: start: 201609, end: 201611
  19. NEUPOGEN [Suspect]
     Active Substance: FILGRASTIM
     Indication: EXPOSURE DURING PREGNANCY
     Dosage: 1 SINGLE INJECTION (30X106 UNITS)
     Route: 064
     Dates: start: 201608, end: 201608
  20. DOXORUBICINE [Suspect]
     Active Substance: DOXORUBICIN
     Indication: EXPOSURE DURING PREGNANCY
     Dosage: 25 MG/M2, (I.E. 45 MG) CYCLE 1
     Route: 064
     Dates: start: 20160729, end: 20160812
  21. DACIN [Suspect]
     Active Substance: DACARBAZINE
     Indication: EXPOSURE DURING PREGNANCY
     Dosage: 375 MG/M2, (I.E. 680 MG) CYCLE 1
     Route: 064
     Dates: start: 20160729, end: 20160812
  22. DACIN [Suspect]
     Active Substance: DACARBAZINE
     Dosage: 375 MG/M2, (I.E. 680 MG) CYCLE 2
     Route: 064
     Dates: start: 20160826, end: 20160909
  23. DACIN [Suspect]
     Active Substance: DACARBAZINE
     Dosage: 375 MG/M2, (I.E. 680 MG) CYCLE 3
     Route: 064
     Dates: start: 20160923
  24. ZOFRAN [Suspect]
     Active Substance: ONDANSETRON HYDROCHLORIDE
     Dosage: 8 MG, CYCLE 2 (CONC: 8 MG/4 ML)
     Route: 064
     Dates: start: 20160826, end: 20160909
  25. ZOFRAN [Suspect]
     Active Substance: ONDANSETRON HYDROCHLORIDE
     Dosage: 8 MG, CYCLE 3 (CONC: 8 MG/4 ML)
     Route: 064
     Dates: start: 20160923, end: 20161017

REACTIONS (3)
  - Hyperbilirubinaemia neonatal [Recovered/Resolved]
  - Neonatal respiratory distress syndrome [Recovered/Resolved]
  - Small for dates baby [Recovering/Resolving]

NARRATIVE: CASE EVENT DATE: 20161124
